FAERS Safety Report 5503011-8 (Version None)
Quarter: 2007Q4

REPORT INFORMATION
  Report Type: 
  Country: None (occurrence: None)
  Receive Date: 20071031
  Receipt Date: 20071022
  Transmission Date: 20080405
  Serious: Yes (Life-Threatening)
  Sender: FDA-Public Use
  Company Number: IT-PURDUE-GBR_2007_0003392

PATIENT
  Age: 76 Year
  Sex: Female

DRUGS (2)
  1. OXYCONTIN [Suspect]
     Indication: PAIN
     Dosage: 20 MG, BID
     Route: 048
  2. MORPHINE [Suspect]
     Indication: PAIN
     Dosage: 1/2 VIAL
     Route: 058

REACTIONS (5)
  - BRADYPNOEA [None]
  - COMA [None]
  - CORNEAL REFLEX DECREASED [None]
  - MIOSIS [None]
  - UNRESPONSIVE TO STIMULI [None]
